FAERS Safety Report 6226750-2 (Version None)
Quarter: 2009Q2

REPORT INFORMATION
  Report Type: 
  Country: None (occurrence: None)
  Receive Date: 20090612
  Receipt Date: 20090519
  Transmission Date: 20091009
  Serious: No
  Sender: FDA-Public Use
  Company Number: US-ABBOTT-09P-163-0575048-00

PATIENT
  Sex: Female
  Weight: 47.67 kg

DRUGS (2)
  1. HUMIRA [Suspect]
     Indication: CROHN'S DISEASE
     Route: 058
     Dates: start: 20080901
  2. ACIDOPHILUS [Concomitant]
     Indication: CROHN'S DISEASE
     Dosage: HIGH DOSE

REACTIONS (9)
  - ANOREXIA [None]
  - DYSPHAGIA [None]
  - GENERAL PHYSICAL HEALTH DETERIORATION [None]
  - INCORRECT STORAGE OF DRUG [None]
  - INJECTION SITE PAIN [None]
  - NAUSEA [None]
  - RECTAL HAEMORRHAGE [None]
  - VISUAL IMPAIRMENT [None]
  - WEIGHT DECREASED [None]
